FAERS Safety Report 7730546-X (Version None)
Quarter: 2011Q3

REPORT INFORMATION
  Report Type: 
  Country: None (occurrence: None)
  Receive Date: 20110906
  Receipt Date: 20110825
  Transmission Date: 20111222
  Serious: Yes (Congenital Anomaly)
  Sender: FDA-Public Use
  Company Number: DE-US-EMD SERONO, INC.-7079116

PATIENT
  Sex: Male
  Weight: 3 kg

DRUGS (2)
  1. MITOXANTRONE [Suspect]
     Route: 064
  2. ONDANSETRON [Concomitant]
     Route: 064

REACTIONS (2)
  - MATERNAL EXPOSURE DURING PREGNANCY [None]
  - PIERRE ROBIN SYNDROME [None]
